FAERS Safety Report 9377296 (Version 1)
Quarter: 2013Q3

REPORT INFORMATION
  Report Type: Spontaneous
  Country: US (occurrence: US)
  Receive Date: 20130701
  Receipt Date: 20130701
  Transmission Date: 20140515
  Serious: No
  Sender: FDA-Public Use
  Company Number: US-ASTRAZENECA-2013SE48058

PATIENT
  Age: 52 Year
  Sex: Female
  Weight: 63.5 kg

DRUGS (8)
  1. SEROQUEL [Suspect]
     Indication: AFFECTIVE DISORDER
     Route: 048
  2. SEROQUEL [Suspect]
     Indication: SLEEP DISORDER
     Route: 048
  3. PRILOSEC [Suspect]
     Indication: DYSPEPSIA
     Route: 048
  4. SYNTHROID [Concomitant]
     Indication: HYPOTHYROIDISM
     Dosage: 50 MCG DAILY
     Route: 048
  5. REGLAN [Concomitant]
     Indication: NAUSEA
     Dosage: ONE TAB QID
     Route: 048
  6. SUBOXONE [Concomitant]
     Indication: DRUG ABUSE
     Route: 048
  7. LAMICTAL [Concomitant]
     Indication: DEPRESSION
     Route: 048
     Dates: start: 201305
  8. TOPAMAX [Concomitant]
     Indication: MIGRAINE
     Route: 048
     Dates: start: 201306

REACTIONS (9)
  - Hypothyroidism [Unknown]
  - Fibromyalgia [Unknown]
  - Nausea [Unknown]
  - Depression [Unknown]
  - Migraine [Unknown]
  - Drug screen positive [Unknown]
  - Dyspepsia [Unknown]
  - Substance use [Unknown]
  - Off label use [Unknown]
